FAERS Safety Report 6546040-8 (Version None)
Quarter: 2010Q1

REPORT INFORMATION
  Report Type: 
  Country: None (occurrence: None)
  Receive Date: 20100121
  Receipt Date: 20100121
  Transmission Date: 20100710
  Serious: Yes (Disabling)
  Sender: FDA-Public Use
  Company Number: None

PATIENT
  Age: 26 Year
  Sex: Female
  Weight: 83 kg

DRUGS (14)
  1. DIPRIVAN [Suspect]
     Indication: SEDATION
     Dosage: 100 MCG/KG/MINUTE CONTINUOUS IV DRIP
     Route: 041
     Dates: start: 20100117, end: 20100118
  2. OSELTEMIVIR - TAMIFLU SUSPENSION [Concomitant]
  3. REGLAN [Concomitant]
  4. MIRALAX [Concomitant]
  5. METHYLPREDNISOLONE - SOLU-MEDROL- [Concomitant]
  6. DALTEPARIN - FRAGMIN- [Concomitant]
  7. ESOMEPRAZOPLE - NEXIUM- [Concomitant]
  8. SODIUM CITRATE-CITRIC ACID - BICITRA- SOLUTION [Concomitant]
  9. AZTREONAM - AZACTAM- [Concomitant]
  10. FENTANYL [Concomitant]
  11. PRECEDEX [Concomitant]
  12. ATIVAN [Concomitant]
  13. INSULIN HUMAN REGULAR [Concomitant]
  14. POTASSIUM CHLORIDE [Concomitant]

REACTIONS (1)
  - BLOOD TRIGLYCERIDES INCREASED [None]
